FAERS Safety Report 17028824 (Version 1)
Quarter: 2019Q4

REPORT INFORMATION
  Report Type: Spontaneous
  Country: BR (occurrence: BR)
  Receive Date: 20191114
  Receipt Date: 20191114
  Transmission Date: 20200122
  Serious: Yes (Hospitalization)
  Sender: FDA-Public Use
  Company Number: BR-B.I. PHARMACEUTICALS,INC./RIDGEFIELD-2019-BI-113239

PATIENT
  Age: 90 Year
  Sex: Male

DRUGS (3)
  1. RIFAMPICINA [Suspect]
     Active Substance: RIFAMPIN
     Indication: ENDOCARDITIS
     Route: 065
  2. PRADAXA [Suspect]
     Active Substance: DABIGATRAN ETEXILATE MESYLATE
     Indication: ATRIAL FIBRILLATION
     Route: 065
  3. RIFAMPICINA [Suspect]
     Active Substance: RIFAMPIN
     Indication: TRANSCATHETER AORTIC VALVE IMPLANTATION

REACTIONS (3)
  - Peripheral embolism [Unknown]
  - Platelet count decreased [Unknown]
  - Contraindicated product administered [Unknown]
